FAERS Safety Report 25820355 (Version 1)
Quarter: 2025Q3

REPORT INFORMATION
  Report Type: Other
  Country: TW (occurrence: TW)
  Receive Date: 20250919
  Receipt Date: 20250919
  Transmission Date: 20251021
  Serious: Yes (Death)
  Sender: ANI
  Company Number: TW-ANIPHARMA-030609

PATIENT
  Age: 71 Year
  Sex: Female

DRUGS (4)
  1. CYCLOPHOSPHAMIDE [Suspect]
     Active Substance: CYCLOPHOSPHAMIDE
     Indication: Plasmablastic lymphoma
  2. ETOPOSIDE [Concomitant]
     Active Substance: ETOPOSIDE
     Indication: Plasmablastic lymphoma
  3. PREDNISOLONE [Concomitant]
     Active Substance: PREDNISOLONE
     Indication: Plasmablastic lymphoma
  4. VINCRISTINE [Concomitant]
     Active Substance: VINCRISTINE
     Indication: Plasmablastic lymphoma

REACTIONS (1)
  - Drug ineffective [Fatal]
